FAERS Safety Report 17959547 (Version 2)
Quarter: 2020Q4

REPORT INFORMATION
  Report Type: Spontaneous
  Country: JP (occurrence: JP)
  Receive Date: 20200629
  Receipt Date: 20201022
  Transmission Date: 20210113
  Serious: Yes (Hospitalization)
  Sender: FDA-Public Use
  Company Number: JP-SA-2020SA163401

PATIENT

DRUGS (1)
  1. CEREZYME [Suspect]
     Active Substance: IMIGLUCERASE
     Indication: GAUCHER^S DISEASE
     Dosage: 6.6 U/KG/DAY
     Route: 041
     Dates: start: 20200623

REACTIONS (1)
  - Laryngospasm [Recovering/Resolving]

NARRATIVE: CASE EVENT DATE: 20200623
